FAERS Safety Report 15436407 (Version 2)
Quarter: 2018Q4

REPORT INFORMATION
  Report Type: Spontaneous
  Country: AT (occurrence: AT)
  Receive Date: 20180927
  Receipt Date: 20181127
  Transmission Date: 20190204
  Serious: Yes (Other)
  Sender: FDA-Public Use
  Company Number: AT-PFIZER INC-2018384387

PATIENT
  Age: 44 Year
  Sex: Female
  Weight: 62 kg

DRUGS (2)
  1. FUNGATA [Suspect]
     Active Substance: FLUCONAZOLE
     Indication: ONYCHOMYCOSIS
     Dosage: 500 MG, WEEKLY
     Dates: start: 20180515, end: 20180815
  2. MEXALEN [Concomitant]
     Active Substance: ACETAMINOPHEN
     Indication: INFLUENZA LIKE ILLNESS
     Dosage: UNK UNK, SINGLE

REACTIONS (3)
  - Palpitations [Not Recovered/Not Resolved]
  - Arrhythmia [Not Recovered/Not Resolved]
  - Electrocardiogram P wave abnormal [Not Recovered/Not Resolved]

NARRATIVE: CASE EVENT DATE: 20180709
